FAERS Safety Report 6674122-9 (Version None)
Quarter: 2010Q2

REPORT INFORMATION
  Report Type: 
  Country: None (occurrence: None)
  Receive Date: 20100407
  Receipt Date: 20100401
  Transmission Date: 20101027
  Serious: Yes (Hospitalization)
  Sender: FDA-Public Use
  Company Number: 2010S1000262-001

PATIENT
  Age: 35 Year
  Sex: Male

DRUGS (8)
  1. PITAVASTATIN CALCIUM [Suspect]
     Indication: HYPERLIPIDAEMIA
     Dosage: 1MG PO
     Route: 048
     Dates: start: 20080301, end: 20100302
  2. THIAMAZOLE [Concomitant]
  3. POTASSIUM GLUCONATE TAB [Concomitant]
  4. PROSULTIAMINE [Concomitant]
  5. MECOBALAMIN [Concomitant]
  6. ACETYLSALICYLIC ACID [Concomitant]
  7. TRIAZOLAM [Concomitant]
  8. FLUNITRAZEPAM [Concomitant]

REACTIONS (3)
  - BLOOD CREATINE PHOSPHOKINASE INCREASED [None]
  - CHROMATURIA [None]
  - MYALGIA [None]
